FAERS Safety Report 5865259-2 (Version None)
Quarter: 2008Q3

REPORT INFORMATION
  Report Type: 
  Country: None (occurrence: None)
  Receive Date: 20080829
  Receipt Date: 20080729
  Transmission Date: 20090109
  Serious: No
  Sender: FDA-Public Use
  Company Number: US-ABBOTT-08P-163-0466606-00

PATIENT
  Sex: Female
  Weight: 113.5 kg

DRUGS (1)
  1. SIMCOR [Suspect]
     Indication: DRUG USE FOR UNKNOWN INDICATION
     Dosage: 500/20 MG (UNIT DOSE)
     Route: 048
     Dates: start: 20080701, end: 20080702

REACTIONS (5)
  - ABDOMINAL PAIN UPPER [None]
  - FEELING HOT [None]
  - PRURITUS [None]
  - THROAT TIGHTNESS [None]
  - VISION BLURRED [None]
